FAERS Safety Report 8246733-0 (Version None)
Quarter: 2012Q1

REPORT INFORMATION
  Report Type: 
  Country: None (occurrence: None)
  Receive Date: 20120330
  Receipt Date: 20120326
  Transmission Date: 20120608
  Serious: Yes (Hospitalization)
  Sender: FDA-Public Use
  Company Number: FR-PFIZER INC-2012060647

PATIENT
  Age: 53 Year
  Sex: Male

DRUGS (3)
  1. PIPERACILLIN AND TAZOBACTAM [Suspect]
     Indication: LUNG DISORDER
     Dosage: 4 G/DAY
     Dates: start: 20120105, end: 20120112
  2. KEPPRA [Concomitant]
     Indication: CONVULSION
     Dosage: 1500 MG/DAY
     Route: 048
     Dates: start: 20111221
  3. LAMICTAL [Suspect]
     Indication: CONVULSION
     Dosage: 25 MG/DAY
     Route: 048
     Dates: start: 20111227, end: 20120109

REACTIONS (2)
  - CHOLESTASIS [None]
  - CYTOLYTIC HEPATITIS [None]
